FAERS Safety Report 19278768 (Version 1)
Quarter: 2021Q2

REPORT INFORMATION
  Report Type: Spontaneous
  Country: US (occurrence: US)
  Receive Date: 20210520
  Receipt Date: 20210520
  Transmission Date: 20210717
  Serious: No
  Sender: FDA-Public Use
  Company Number: None

PATIENT
  Age: 76 Year
  Sex: Male

DRUGS (4)
  1. VTIAMIN E 400 IU CAPSULE [Concomitant]
  2. JUXTAPID [Suspect]
     Active Substance: LOMITAPIDE MESYLATE
     Indication: TYPE IIA HYPERLIPIDAEMIA
     Route: 048
  3. SUPER OMEGA?3 CAPSULE [Concomitant]
  4. CHLORTHALIDONE 25 MG [Concomitant]
     Active Substance: CHLORTHALIDONE

REACTIONS (3)
  - Diet noncompliance [None]
  - Product dose omission issue [None]
  - Diarrhoea [None]
